FAERS Safety Report 8963040 (Version 1)
Quarter: 2012Q4

REPORT INFORMATION
  Report Type: Spontaneous
  Country: US (occurrence: None)
  Receive Date: 20121206
  Receipt Date: 20121206
  Transmission Date: 20130627
  Serious: Yes (Hospitalization)
  Sender: FDA-Public Use
  Company Number: 2012PROUSA02245

PATIENT
  Age: 75 Year
  Sex: Male

DRUGS (1)
  1. PROVENGE [Suspect]
     Indication: PROSTATE CANCER
     Dates: start: 20121029, end: 20121029

REACTIONS (3)
  - Pulmonary embolism [None]
  - Device related infection [None]
  - Deep vein thrombosis [None]
